FAERS Safety Report 8811021 (Version 1)
Quarter: 2012Q4

REPORT INFORMATION
  Report Type: 
  Country: US (occurrence: US)
  Receive Date: 20120927
  Receipt Date: 20120927
  Transmission Date: 20130627
  Serious: No
  Sender: FDA-Public Use
  Company Number: US-009507513-1209USA007435

PATIENT
  Age: 49 Year
  Sex: Female

DRUGS (4)
  1. DULERA [Suspect]
     Indication: ASTHMA
     Route: 055
  2. SINGULAIR [Concomitant]
  3. VENTOLIN (ALBUTEROL) [Concomitant]
  4. SPIRIVA [Concomitant]

REACTIONS (1)
  - Chronic obstructive pulmonary disease [Not Recovered/Not Resolved]
